FAERS Safety Report 4526977-1 (Version None)
Quarter: 2004Q4

REPORT INFORMATION
  Report Type: 
  Country: None (occurrence: None)
  Receive Date: 20041126
  Receipt Date: 20040824
  Transmission Date: 20050328
  Serious: Yes (Hospitalization)
  Sender: FDA-Public Use
  Company Number: SU-2004-002543

PATIENT
  Age: 39 Year
  Sex: Male

DRUGS (5)
  1. BENICAR [Suspect]
     Indication: HYPERTENSION
     Dosage: 20 MG QD PO
     Route: 048
     Dates: start: 20040120, end: 20040628
  2. BENICAR [Suspect]
     Indication: HYPERTENSION
     Dosage: 40 MG QD PO
     Route: 048
     Dates: start: 20040629, end: 20040710
  3. ACTOS [Suspect]
     Indication: DIABETES MELLITUS
     Dosage: 15 MG QD PO
     Route: 048
     Dates: start: 20040701, end: 20040710
  4. ARTHROTEC [Concomitant]
  5. ALLOPURINOL [Concomitant]

REACTIONS (1)
  - RENAL FAILURE ACUTE [None]
